FAERS Safety Report 6894185-5 (Version None)
Quarter: 2010Q3

REPORT INFORMATION
  Report Type: 
  Country: None (occurrence: None)
  Receive Date: 20100802
  Receipt Date: 20100714
  Transmission Date: 20110219
  Serious: Yes (Hospitalization)
  Sender: FDA-Public Use
  Company Number: AU-RANBAXY-2010RR-35055

PATIENT
  Age: 35 Year
  Sex: Female

DRUGS (5)
  1. FLUOXETINE [Suspect]
     Dosage: 60 MG, UNK
  2. FLUOXETINE [Suspect]
     Dosage: 80 MG, UNK
  3. ACUPHASE [Suspect]
     Dosage: 100 MG, UNK
     Route: 030
  4. QUETIAPINE [Concomitant]
     Dosage: 1500 MG, UNK
     Route: 048
  5. NITRAZEPAM [Concomitant]
     Dosage: 375 MG, UNK
     Route: 048

REACTIONS (4)
  - BLOOD PRESSURE SYSTOLIC INCREASED [None]
  - DRUG INTERACTION [None]
  - MULTIPLE DRUG OVERDOSE [None]
  - SPASMODIC DYSPHONIA [None]
